FAERS Safety Report 5741076-9 (Version None)
Quarter: 2008Q2

REPORT INFORMATION
  Report Type: 
  Country: None (occurrence: None)
  Receive Date: 20080516
  Receipt Date: 20080509
  Transmission Date: 20081010
  Serious: Yes (Death, Hospitalization)
  Sender: FDA-Public Use
  Company Number: US-GENENTECH-260859

PATIENT
  Sex: Male
  Weight: 102.95 kg

DRUGS (3)
  1. BEVACIZUMAB [Suspect]
     Indication: COLORECTAL CANCER METASTATIC
     Dosage: 7.5 MG/KG, UNK
     Dates: start: 20071030
  2. OXALIPLATIN [Suspect]
     Indication: COLORECTAL CANCER METASTATIC
     Dosage: 130 MG/M2, UNK
     Dates: start: 20071030
  3. CETUXIMAB [Concomitant]
     Indication: COLORECTAL CANCER METASTATIC
     Dates: start: 20071030

REACTIONS (1)
  - DEATH [None]
